FAERS Safety Report 25858584 (Version 1)
Quarter: 2025Q3

REPORT INFORMATION
  Report Type: Spontaneous
  Country: EU (occurrence: EU)
  Receive Date: 20250929
  Receipt Date: 20250929
  Transmission Date: 20251020
  Serious: Yes (Death, Hospitalization)
  Sender: MYLAN
  Company Number: EU-MYLANLABS-2025M1082556

PATIENT
  Age: 67 Year
  Sex: Male

DRUGS (16)
  1. VANCOMYCIN [Suspect]
     Active Substance: VANCOMYCIN
     Indication: Klebsiella infection
  2. VANCOMYCIN [Suspect]
     Active Substance: VANCOMYCIN
     Route: 065
  3. VANCOMYCIN [Suspect]
     Active Substance: VANCOMYCIN
     Route: 065
  4. VANCOMYCIN [Suspect]
     Active Substance: VANCOMYCIN
  5. LINEZOLID [Suspect]
     Active Substance: LINEZOLID
     Indication: Klebsiella infection
  6. LINEZOLID [Suspect]
     Active Substance: LINEZOLID
     Route: 065
  7. LINEZOLID [Suspect]
     Active Substance: LINEZOLID
     Route: 065
  8. LINEZOLID [Suspect]
     Active Substance: LINEZOLID
  9. MEROPENEM [Concomitant]
     Active Substance: MEROPENEM
     Indication: Klebsiella infection
  10. MEROPENEM [Concomitant]
     Active Substance: MEROPENEM
     Route: 065
  11. MEROPENEM [Concomitant]
     Active Substance: MEROPENEM
     Route: 065
  12. MEROPENEM [Concomitant]
     Active Substance: MEROPENEM
  13. COLISTIN [Concomitant]
     Active Substance: COLISTIN
     Indication: Klebsiella infection
  14. COLISTIN [Concomitant]
     Active Substance: COLISTIN
     Route: 065
  15. COLISTIN [Concomitant]
     Active Substance: COLISTIN
     Route: 065
  16. COLISTIN [Concomitant]
     Active Substance: COLISTIN

REACTIONS (1)
  - Drug ineffective [Fatal]
